FAERS Safety Report 19273957 (Version 1)
Quarter: 2021Q2

REPORT INFORMATION
  Report Type: Spontaneous
  Country: US (occurrence: US)
  Receive Date: 20210518
  Receipt Date: 20210518
  Transmission Date: 20210717
  Serious: Yes (Death, Hospitalization, Disabling)
  Sender: FDA-Public Use
  Company Number: None

PATIENT
  Age: 79 Year
  Sex: Male
  Weight: 88.2 kg

DRUGS (9)
  1. ALLOPURINAL [Concomitant]
     Active Substance: ALLOPURINOL
  2. YERVOY [Suspect]
     Active Substance: IPILIMUMAB
  3. CARVEDILOL. [Concomitant]
     Active Substance: CARVEDILOL
  4. LASIX [Concomitant]
     Active Substance: FUROSEMIDE
  5. PLAVIX [Concomitant]
     Active Substance: CLOPIDOGREL BISULFATE
  6. ZYRTEC [Concomitant]
     Active Substance: CETIRIZINE HYDROCHLORIDE
  7. TYLENOL [Concomitant]
     Active Substance: ACETAMINOPHEN
  8. OPDIVO [Suspect]
     Active Substance: NIVOLUMAB
     Dosage: ?          OTHER ROUTE:TRANSFUSION AT CANCER CENTER?
  9. PRADAXA [Concomitant]
     Active Substance: DABIGATRAN ETEXILATE MESYLATE

REACTIONS (3)
  - Hospice care [None]
  - Colitis [None]
  - Organ failure [None]

NARRATIVE: CASE EVENT DATE: 20201222
